FAERS Safety Report 26080357 (Version 2)
Quarter: 2025Q4

REPORT INFORMATION
  Report Type: Spontaneous
  Country: RU (occurrence: RU)
  Receive Date: 20251124
  Receipt Date: 20251212
  Transmission Date: 20260118
  Serious: Yes (Death, Hospitalization, Other)
  Sender: IPCA
  Company Number: RU-IPCA LABORATORIES LIMITED-IPC-2025-RU-003168

PATIENT

DRUGS (3)
  1. LAMOTRIGINE [Suspect]
     Active Substance: LAMOTRIGINE
     Indication: Idiopathic generalised epilepsy
     Dosage: UNK
     Route: 065
  2. ACETAMINOPHEN [Suspect]
     Active Substance: ACETAMINOPHEN
     Indication: Pyrexia
     Dosage: UNK
     Route: 065
  3. IBUPROFEN [Suspect]
     Active Substance: IBUPROFEN
     Indication: Pyrexia
     Dosage: UNK
     Route: 065

REACTIONS (3)
  - Obliterative bronchiolitis [Fatal]
  - Stevens-Johnson syndrome [Fatal]
  - Chronic respiratory failure [Fatal]
